FAERS Safety Report 20977502 (Version 4)
Quarter: 2022Q4

REPORT INFORMATION
  Report Type: Report from Study
  Country: IT (occurrence: IT)
  Receive Date: 20220618
  Receipt Date: 20221004
  Transmission Date: 20230112
  Serious: Yes (Death, Hospitalization)
  Sender: FDA-Public Use
  Company Number: IT-ABBVIE-22K-083-4435423-00

PATIENT
  Age: 70 Year
  Sex: Male

DRUGS (2)
  1. CARBIDOPA\LEVODOPA [Suspect]
     Active Substance: CARBIDOPA\LEVODOPA
     Indication: Parkinson^s disease
     Dosage: DAILY DOSE 1360 MG; PUMP SETTING MD 7 PLUS 3 CR 3,2 (17H), ED 2,5
     Route: 050
     Dates: start: 20170405, end: 20220711
  2. CARBIDOPA\LEVODOPA [Suspect]
     Active Substance: CARBIDOPA\LEVODOPA
     Dosage: DAILY DOSE: 1280 MG; PUMP SETTING: MD: 3+3 CR: 3,2 (17H), ED: 2,5
     Route: 050
     Dates: start: 2022, end: 20220915

REACTIONS (2)
  - Malaise [Fatal]
  - Respiratory tract infection [Fatal]

NARRATIVE: CASE EVENT DATE: 20220601
